FAERS Safety Report 7473818-9 (Version None)
Quarter: 2011Q2

REPORT INFORMATION
  Report Type: 
  Country: None (occurrence: None)
  Receive Date: 20110511
  Receipt Date: 20110509
  Transmission Date: 20111010
  Serious: Yes (Other)
  Sender: FDA-Public Use
  Company Number: JP-PFIZER INC-2011099352

PATIENT
  Age: 77 Year
  Sex: Male

DRUGS (9)
  1. LYRICA [Suspect]
     Dosage: 300 MG/DAY
     Dates: start: 20110421
  2. MICARDIS [Concomitant]
     Dosage: 20 MG, 1X/DAY
  3. LASIX [Concomitant]
     Dosage: 40 MG/DAY
  4. SPIRONOLACTONE [Concomitant]
     Dosage: 25 MG, 1X/DAY
  5. SITAGLIPTIN PHOSPHATE [Concomitant]
     Dosage: 50 MG, 1X/DAY
  6. LYRICA [Suspect]
     Dosage: 150 MG/DAY
     Dates: start: 20110405, end: 20110418
  7. LYRICA [Suspect]
     Dosage: 225 MG/DAY
     Dates: start: 20110419, end: 20110420
  8. GLIMEPIRIDE [Concomitant]
     Dosage: 0.5 MG, 1X/DAY
  9. ZOPICLONE [Concomitant]
     Dosage: 1 DF, 1X/DAY

REACTIONS (2)
  - JAUNDICE [None]
  - BLOOD BILIRUBIN INCREASED [None]
